FAERS Safety Report 20046129 (Version 1)
Quarter: 2021Q4

REPORT INFORMATION
  Report Type: Spontaneous
  Country: US (occurrence: US)
  Receive Date: 20211109
  Receipt Date: 20211109
  Transmission Date: 20220303
  Serious: Yes (Hospitalization)
  Sender: FDA-Public Use
  Company Number: US-BIOVITRUM-2021US9827

PATIENT
  Age: 3 Month
  Sex: Male

DRUGS (2)
  1. SYNAGIS [Suspect]
     Active Substance: PALIVIZUMAB
     Indication: Antiviral prophylaxis
     Dosage: 100MG/1ML
     Route: 030
     Dates: start: 20210825
  2. PEPCID [Concomitant]
     Active Substance: FAMOTIDINE

REACTIONS (1)
  - Respiratory syncytial virus infection [Unknown]

NARRATIVE: CASE EVENT DATE: 20211001
